FAERS Safety Report 16053519 (Version 1)
Quarter: 2019Q1

REPORT INFORMATION
  Report Type: Spontaneous
  Country: CA (occurrence: CA)
  Receive Date: 20190308
  Receipt Date: 20190308
  Transmission Date: 20190418
  Serious: Yes (Hospitalization, Other)
  Sender: FDA-Public Use
  Company Number: CA-PFIZER INC-2019099730

PATIENT
  Age: 64 Year
  Sex: Female

DRUGS (9)
  1. NITROGLYCERIN. [Concomitant]
     Active Substance: NITROGLYCERIN
     Dosage: UNK
  2. SPIRONOLACTONE. [Suspect]
     Active Substance: SPIRONOLACTONE
     Dosage: 25 MG, 1X/DAY
     Route: 048
  3. IRBESARTAN. [Suspect]
     Active Substance: IRBESARTAN
     Dosage: 300 MG, 1X/DAY
     Route: 048
  4. CLOPIDOGREL [Concomitant]
     Active Substance: CLOPIDOGREL BISULFATE
     Dosage: UNK
  5. INDOMETHACIN [INDOMETACIN] [Suspect]
     Active Substance: INDOMETHACIN
     Indication: GOUT
     Dosage: 50 MG, 3X/DAY
     Route: 048
  6. ATORVASTATIN CALCIUM. [Concomitant]
     Active Substance: ATORVASTATIN CALCIUM
     Dosage: UNK
  7. FUROSEMIDE. [Suspect]
     Active Substance: FUROSEMIDE
     Dosage: 40 MG, 2X/DAY
     Route: 048
  8. INSULIN [Concomitant]
     Active Substance: INSULIN NOS
     Dosage: UNK
  9. NORTRIPTYLINE [Concomitant]
     Active Substance: NORTRIPTYLINE
     Dosage: UNK

REACTIONS (15)
  - Vertigo [Unknown]
  - Blood glucose abnormal [Unknown]
  - Blood potassium increased [Unknown]
  - Dizziness [Unknown]
  - Blood creatinine abnormal [Unknown]
  - Blood sodium decreased [Unknown]
  - Chromaturia [Unknown]
  - Fatigue [Unknown]
  - Vomiting [Unknown]
  - Sputum discoloured [Unknown]
  - White blood cell analysis abnormal [Unknown]
  - Sputum increased [Unknown]
  - Blood urea abnormal [Unknown]
  - Hypophagia [Unknown]
  - Staphylococcus test positive [Unknown]
